FAERS Safety Report 20969593 (Version 2)
Quarter: 2022Q3

REPORT INFORMATION
  Report Type: Spontaneous
  Country: US (occurrence: US)
  Receive Date: 20220616
  Receipt Date: 20220702
  Transmission Date: 20221026
  Serious: Yes (Hospitalization)
  Sender: FDA-Public Use
  Company Number: US-TEVA-2022-US-2045633

PATIENT
  Age: 62 Year
  Sex: Male

DRUGS (2)
  1. CLONAZEPAM [Suspect]
     Active Substance: CLONAZEPAM
     Indication: Generalised anxiety disorder
     Route: 065
  2. NICOTINE [Suspect]
     Active Substance: NICOTINE
     Indication: Drug abuse
     Route: 048

REACTIONS (18)
  - Delirium [Recovering/Resolving]
  - Paranoia [Recovering/Resolving]
  - Insomnia [Recovering/Resolving]
  - Chest pain [Recovered/Resolved]
  - Vasospasm [Recovered/Resolved]
  - Tobacco abuse [Unknown]
  - Overdose [Unknown]
  - Toxicity to various agents [Unknown]
  - Drug withdrawal syndrome [Unknown]
  - Dyspnoea [Unknown]
  - Chest discomfort [Unknown]
  - Hyperhidrosis [Unknown]
  - Speech disorder [Recovering/Resolving]
  - Cognitive disorder [Recovering/Resolving]
  - Dry mouth [Unknown]
  - Agitation [Unknown]
  - Restlessness [Unknown]
  - Hypertension [Unknown]
